FAERS Safety Report 4914605-2 (Version None)
Quarter: 2006Q1

REPORT INFORMATION
  Report Type: 
  Country: None (occurrence: None)
  Receive Date: 20060216
  Receipt Date: 20051019
  Transmission Date: 20060701
  Serious: Yes (Hospitalization)
  Sender: FDA-Public Use
  Company Number: US-MERCK-0510USA08275

PATIENT
  Age: 64 Year
  Sex: Male

DRUGS (2)
  1. VIOXX [Suspect]
     Indication: OSTEOARTHRITIS
     Route: 048
     Dates: start: 20010401, end: 20030613
  2. VIOXX [Suspect]
     Route: 048
     Dates: end: 20040201

REACTIONS (21)
  - ACUTE SINUSITIS [None]
  - BRONCHITIS [None]
  - BRONCHITIS ACUTE [None]
  - CEREBROVASCULAR ACCIDENT [None]
  - CHEST PAIN [None]
  - CHRONIC OBSTRUCTIVE PULMONARY DISEASE [None]
  - CONTUSION [None]
  - DYSPHAGIA [None]
  - DYSPNOEA [None]
  - FLUID RETENTION [None]
  - HYPERGLYCAEMIA [None]
  - HYPERLIPIDAEMIA [None]
  - HYPERTENSION [None]
  - LACUNAR INFARCTION [None]
  - PAIN IN EXTREMITY [None]
  - SINUSITIS [None]
  - SKIN LESION [None]
  - SPINAL COLUMN STENOSIS [None]
  - TRANSIENT ISCHAEMIC ATTACK [None]
  - UPPER RESPIRATORY TRACT INFECTION [None]
  - WEIGHT DECREASED [None]
